FAERS Safety Report 13548312 (Version 1)
Quarter: 2017Q2

REPORT INFORMATION
  Report Type: Spontaneous
  Country: US (occurrence: US)
  Receive Date: 20170516
  Receipt Date: 20170516
  Transmission Date: 20170830
  Serious: No
  Sender: FDA-Public Use
  Company Number: US-JNJFOC-20170320277

PATIENT
  Sex: Male

DRUGS (3)
  1. ROGAINE [Suspect]
     Active Substance: MINOXIDIL
     Indication: ANDROGENETIC ALOPECIA
     Route: 065
  2. NIZORAL A-D [Concomitant]
     Active Substance: KETOCONAZOLE
     Indication: ANDROGENETIC ALOPECIA
     Route: 065
  3. ROGAINE [Suspect]
     Active Substance: MINOXIDIL
     Route: 065

REACTIONS (2)
  - Drug effect incomplete [Unknown]
  - Contraindicated product administered [Unknown]
